FAERS Safety Report 18117680 (Version 1)
Quarter: 2020Q3

REPORT INFORMATION
  Report Type: Spontaneous
  Country: US (occurrence: US)
  Receive Date: 20200805
  Receipt Date: 20200805
  Transmission Date: 20201103
  Serious: Yes (Hospitalization)
  Sender: FDA-Public Use
  Company Number: None

PATIENT
  Sex: Female

DRUGS (1)
  1. DEFERASIROX 360MG ZYDUS PHARMACEUTICALS (USA [Suspect]
     Active Substance: DEFERASIROX
     Indication: MYELOFIBROSIS
     Route: 048
     Dates: start: 202007

REACTIONS (1)
  - Hospitalisation [None]
